FAERS Safety Report 21728645 (Version 1)
Quarter: 2022Q4

REPORT INFORMATION
  Report Type: Spontaneous
  Country: US (occurrence: None)
  Receive Date: 20221214
  Receipt Date: 20221214
  Transmission Date: 20230113
  Serious: Yes (Other)
  Sender: FDA-Public Use
  Company Number: None

PATIENT
  Age: 33 Year
  Sex: Female
  Weight: 122.67 kg

DRUGS (6)
  1. GABAPENTIN [Suspect]
     Active Substance: GABAPENTIN
     Indication: Sciatica
     Dosage: OTHER QUANTITY : 270 CAPSULE(S);?FREQUENCY : 3 TIMES A DAY;?
     Route: 048
  2. IBUPROFEN [Suspect]
     Active Substance: IBUPROFEN
     Indication: Sciatica
     Dosage: OTHER QUANTITY : 21 TABLET(S);?FREQUENCY : 3 TIMES A DAY;?
     Route: 048
     Dates: start: 20221207
  3. Gabapentin 300mg [Concomitant]
  4. LIDOCAINE [Concomitant]
     Active Substance: LIDOCAINE
  5. IBUPROFEN [Concomitant]
     Active Substance: IBUPROFEN
  6. CYCLOBENZAPRINE [Suspect]
     Active Substance: CYCLOBENZAPRINE

REACTIONS (1)
  - Somnolence [None]

NARRATIVE: CASE EVENT DATE: 20221208
